FAERS Safety Report 15499683 (Version 3)
Quarter: 2019Q1

REPORT INFORMATION
  Report Type: Spontaneous
  Country: CZ (occurrence: CZ)
  Receive Date: 20181015
  Receipt Date: 20190214
  Transmission Date: 20190417
  Serious: Yes (Hospitalization, Other)
  Sender: FDA-Public Use
  Company Number: CZ-MYLANLABS-2018M1074951

PATIENT
  Age: 83 Year
  Sex: Female

DRUGS (14)
  1. TENAXUM [Suspect]
     Active Substance: RILMENIDINE
     Indication: PRODUCT USED FOR UNKNOWN INDICATION
     Dosage: UNK, BID (1-0-1)
     Route: 065
  2. ITOPRIDE [Suspect]
     Active Substance: ITOPRIDE
     Indication: PRODUCT USED FOR UNKNOWN INDICATION
     Dosage: 1-0-1
     Route: 065
  3. CALCICHEW D3 [Suspect]
     Active Substance: CALCIUM\CHOLECALCIFEROL
     Indication: PRODUCT USED FOR UNKNOWN INDICATION
     Dosage: 0-1-0
     Route: 048
  4. VASOCARDIN [Suspect]
     Active Substance: METOPROLOL
     Indication: PRODUCT USED FOR UNKNOWN INDICATION
     Dosage: UNK, QD (200 MG;1/2-0-0)
     Route: 048
  5. WARFARIN [Suspect]
     Active Substance: WARFARIN
     Indication: PRODUCT USED FOR UNKNOWN INDICATION
     Dosage: UNK, QD (STRENGTH: 3 MG; 0-1-0,)
     Route: 048
  6. HYDROCHLOROTHIAZIDE. [Suspect]
     Active Substance: HYDROCHLOROTHIAZIDE
     Indication: PRODUCT USED FOR UNKNOWN INDICATION
     Dosage: UNK, QD ( STRENGTH: 25 MG; ?-0-0 )
     Route: 065
  7. GODASAL [Suspect]
     Active Substance: ASPIRIN\GLYCINE
     Indication: PRODUCT USED FOR UNKNOWN INDICATION
     Dosage: UNK, QD (STRENGTH: 100 MG; 0-1/2-0   )
     Route: 048
  8. NOLPAZA [Suspect]
     Active Substance: PANTOPRAZOLE SODIUM
     Indication: PRODUCT USED FOR UNKNOWN INDICATION
     Dosage: STRENGTH: 20 MG; 1-0-0
     Route: 048
  9. TRITACE [Suspect]
     Active Substance: RAMIPRIL
     Indication: PRODUCT USED FOR UNKNOWN INDICATION
     Dosage: UNK, QD (STRENGTH: 10 MG; 1-0-0)
     Route: 065
  10. OXYCONTIN [Suspect]
     Active Substance: OXYCODONE HYDROCHLORIDE
     Indication: PRODUCT USED FOR UNKNOWN INDICATION
     Dosage: 60 MG; ?-0-?
     Route: 048
  11. APO-PANTOPRAZOLE [Suspect]
     Active Substance: PANTOPRAZOLE SODIUM
     Indication: PRODUCT USED FOR UNKNOWN INDICATION
     Dosage: UNK, QD (STRENGTH: 40 MG; 0-0-1)(40 MG, HS)
     Route: 065
  12. WARFARIN [Suspect]
     Active Substance: WARFARIN
     Indication: PRODUCT USED FOR UNKNOWN INDICATION
     Dosage: 5 MILLIGRAM, QD
     Route: 048
     Dates: start: 1996
  13. FRAXIPARINE [Suspect]
     Active Substance: NADROPARIN CALCIUM
     Indication: PRODUCT USED FOR UNKNOWN INDICATION
     Dosage: 0.6  , QD
     Route: 058
  14. CITALOPRAM [Suspect]
     Active Substance: CITALOPRAM HYDROBROMIDE
     Indication: PRODUCT USED FOR UNKNOWN INDICATION
     Dosage: STRENGTH: 10 MG; 1-0-0
     Route: 048
     Dates: start: 201709

REACTIONS (24)
  - Pain [Recovering/Resolving]
  - Anal fissure [Recovering/Resolving]
  - Confusional state [Recovered/Resolved]
  - Psychomotor retardation [Recovering/Resolving]
  - Urinary retention [Recovering/Resolving]
  - Dehydration [Recovering/Resolving]
  - Thrombocytosis [Recovering/Resolving]
  - Fall [Recovering/Resolving]
  - Anaemia of chronic disease [Recovering/Resolving]
  - Drug level above therapeutic [Recovering/Resolving]
  - Hypochloraemia [Recovering/Resolving]
  - Renal failure [Recovering/Resolving]
  - Drug abuse [Unknown]
  - Asthenia [Recovering/Resolving]
  - Haematoma [Recovering/Resolving]
  - Intestinal haemorrhage [Recovering/Resolving]
  - Oedema peripheral [Recovered/Resolved]
  - International normalised ratio increased [Recovering/Resolving]
  - Somnolence [Recovering/Resolving]
  - Urinary tract infection [Recovering/Resolving]
  - Constipation [Recovering/Resolving]
  - Hyponatraemia [Recovering/Resolving]
  - Walking disability [Recovering/Resolving]
  - Hypertension [Recovering/Resolving]
